FAERS Safety Report 9665392 (Version 3)
Quarter: 2014Q2

REPORT INFORMATION
  Report Type: Spontaneous
  Country: RU (occurrence: RU)
  Receive Date: 20131104
  Receipt Date: 20140620
  Transmission Date: 20141212
  Serious: Yes (Hospitalization, Other)
  Sender: FDA-Public Use
  Company Number: RU-AMGEN-RUSSP2013076348

PATIENT
  Age: 73 Year
  Sex: Female
  Weight: 85 kg

DRUGS (10)
  1. NPLATE [Suspect]
     Indication: THROMBOCYTOPENIA
     Dosage: 3 MUG/KG, QWK
     Route: 058
     Dates: start: 20120418
  2. NOLIPREL                           /01421201/ [Concomitant]
     Indication: HYPERTENSION
     Dosage: 1 TAB, QD
     Route: 048
  3. AMLODIPINE [Concomitant]
  4. SOTAHEXAL [Concomitant]
     Indication: HEART RATE ABNORMAL
     Dosage: 2 TABS, BID
     Route: 048
  5. IMMUNOGLOBULIN                     /00025201/ [Concomitant]
     Route: 042
  6. MYCOPHENOLATE [Concomitant]
  7. RITUXIMAB [Concomitant]
  8. CYCLOPHOSPHAMIDE [Concomitant]
  9. VINCRISTINE [Concomitant]
  10. ELTROMBOPAG [Concomitant]

REACTIONS (3)
  - Extremity necrosis [Recovered/Resolved]
  - Ischaemia [Recovered/Resolved]
  - Thrombosis [Unknown]
